FAERS Safety Report 6983009-3 (Version None)
Quarter: 2010Q3

REPORT INFORMATION
  Report Type: 
  Country: None (occurrence: None)
  Receive Date: 20100914
  Receipt Date: 20100511
  Transmission Date: 20110219
  Serious: Yes (Other)
  Sender: FDA-Public Use
  Company Number: US-PFIZER INC-2010059915

PATIENT
  Sex: Female
  Weight: 87.982 kg

DRUGS (2)
  1. LYRICA [Suspect]
     Indication: FIBROMYALGIA
     Dosage: 100 MG, 2X/DAY
     Route: 048
     Dates: start: 20100401
  2. ZOLPIDEM TARTRATE [Concomitant]
     Indication: SLEEP DISORDER
     Dosage: 0.5 MG, 1X/DAY

REACTIONS (2)
  - INCREASED APPETITE [None]
  - WEIGHT INCREASED [None]
